FAERS Safety Report 14930775 (Version 1)
Quarter: 2018Q2

REPORT INFORMATION
  Report Type: Report from Study
  Country: None (occurrence: US)
  Receive Date: 20180523
  Receipt Date: 20180523
  Transmission Date: 20180711
  Serious: Yes (Hospitalization, Other)
  Sender: FDA-Public Use
  Company Number: US-ABBVIE-18K-163-2308466-00

PATIENT
  Sex: Male
  Weight: 81.72 kg

DRUGS (1)
  1. HUMIRA [Suspect]
     Active Substance: ADALIMUMAB
     Indication: CROHN^S DISEASE
     Route: 058
     Dates: start: 20160222, end: 20180304

REACTIONS (13)
  - Weight decreased [Not Recovered/Not Resolved]
  - Throat irritation [Recovered/Resolved]
  - Diarrhoea [Not Recovered/Not Resolved]
  - Fibrin D dimer increased [Recovered/Resolved]
  - Pneumonia [Recovering/Resolving]
  - Histoplasmosis [Recovering/Resolving]
  - Pulmonary oedema [Recovered/Resolved]
  - Skin cancer [Unknown]
  - Malaise [Recovering/Resolving]
  - Bronchitis [Not Recovered/Not Resolved]
  - Squamous cell carcinoma of skin [Recovered/Resolved]
  - Sinus congestion [Recovering/Resolving]
  - Squamous cell carcinoma of skin [Recovered/Resolved]

NARRATIVE: CASE EVENT DATE: 2017
